FAERS Safety Report 7046828-3 (Version None)
Quarter: 2010Q4

REPORT INFORMATION
  Report Type: 
  Country: None (occurrence: None)
  Receive Date: 20101015
  Receipt Date: 20101011
  Transmission Date: 20110411
  Serious: Yes (Hospitalization)
  Sender: FDA-Public Use
  Company Number: AR-JNJFOC-20100304558

PATIENT
  Age: 10 Year
  Sex: Male

DRUGS (1)
  1. IBUPIRAC 2% [Suspect]
     Indication: PYREXIA
     Dosage: 90 ML TOTAL FREQUENCY NOT REPORTED

REACTIONS (6)
  - DEHYDRATION [None]
  - DIARRHOEA [None]
  - DRUG INEFFECTIVE [None]
  - GASTRIC DISORDER [None]
  - PRODUCT CONTAMINATION MICROBIAL [None]
  - VOMITING [None]
